FAERS Safety Report 11692418 (Version 1)
Quarter: 2015Q4

REPORT INFORMATION
  Report Type: Spontaneous
  Country: SE (occurrence: SE)
  Receive Date: 20151103
  Receipt Date: 20151103
  Transmission Date: 20160304
  Serious: Yes (Hospitalization)
  Sender: FDA-Public Use
  Company Number: SE-ROCHE-1651959

PATIENT
  Age: 6 Year
  Sex: Male

DRUGS (7)
  1. FLUTIFORM [Concomitant]
     Active Substance: FLUTICASONE PROPIONATE\FORMOTEROL FUMARATE
     Route: 065
  2. CLARITYNE [Concomitant]
     Active Substance: LORATADINE
  3. XOLAIR [Suspect]
     Active Substance: OMALIZUMAB
     Indication: ALLERGY TO ANIMAL
  4. XOLAIR [Suspect]
     Active Substance: OMALIZUMAB
     Indication: SEASONAL ALLERGY
     Route: 058
     Dates: start: 201505, end: 20150925
  5. VENTOLINE [Concomitant]
     Active Substance: ALBUTEROL
  6. SINGULAIR [Concomitant]
     Active Substance: MONTELUKAST SODIUM
  7. XOLAIR [Suspect]
     Active Substance: OMALIZUMAB
     Indication: FOOD ALLERGY

REACTIONS (3)
  - Stevens-Johnson syndrome [Recovered/Resolved]
  - Bradycardia [Recovered/Resolved]
  - Alopecia [Recovered/Resolved]

NARRATIVE: CASE EVENT DATE: 201509
